FAERS Safety Report 19047514 (Version 3)
Quarter: 2021Q2

REPORT INFORMATION
  Report Type: Report from Study
  Country: GB (occurrence: GB)
  Receive Date: 20210323
  Receipt Date: 20210604
  Transmission Date: 20210717
  Serious: Yes (Other)
  Sender: FDA-Public Use
  Company Number: NVSC2021GB061794

PATIENT
  Sex: Female

DRUGS (2)
  1. KISQALI [Suspect]
     Active Substance: RIBOCICLIB
     Dosage: 600 MG, QD
     Route: 048
     Dates: start: 20210317
  2. KISQALI [Suspect]
     Active Substance: RIBOCICLIB
     Indication: BREAST CANCER METASTATIC
     Dosage: UNK
     Route: 065
     Dates: start: 20210301

REACTIONS (9)
  - Muscle discomfort [Unknown]
  - Somnolence [Recovered/Resolved]
  - Alopecia [Unknown]
  - Limb discomfort [Unknown]
  - Muscle spasms [Unknown]
  - Contusion [Unknown]
  - Fatigue [Recovered/Resolved]
  - Renal impairment [Unknown]
  - Headache [Unknown]

NARRATIVE: CASE EVENT DATE: 202104
